FAERS Safety Report 17689000 (Version 2)
Quarter: 2020Q2

REPORT INFORMATION
  Report Type: Spontaneous
  Country: US (occurrence: US)
  Receive Date: 20200421
  Receipt Date: 20200508
  Transmission Date: 20200714
  Serious: No
  Sender: FDA-Public Use
  Company Number: US-VERTEX PHARMACEUTICALS-2020-008851

PATIENT
  Age: 36 Year
  Sex: Male
  Weight: 74 kg

DRUGS (1)
  1. TRIKAFTA [Suspect]
     Active Substance: ELEXACAFTOR\IVACAFTOR\TEZACAFTOR
     Indication: CYSTIC FIBROSIS
     Dosage: (100MG ELEXACAFTOR/50MG TEZACAFTOR/75MG IVACAFTOR AND  150MG IVACAFTOR)UNKWN FREQ
     Route: 048
     Dates: start: 202001

REACTIONS (2)
  - Increased appetite [Unknown]
  - Cough [Recovering/Resolving]

NARRATIVE: CASE EVENT DATE: 202001
